FAERS Safety Report 9420996 (Version 1)
Quarter: 2013Q3

REPORT INFORMATION
  Report Type: Spontaneous
  Country: US (occurrence: US)
  Receive Date: 20130725
  Receipt Date: 20130725
  Transmission Date: 20140515
  Serious: No
  Sender: FDA-Public Use
  Company Number: US-ABBOTT-13P-163-1111864-00

PATIENT
  Age: 45 Year
  Sex: Female
  Weight: 83.99 kg

DRUGS (2)
  1. SYNTHROID [Suspect]
     Indication: THYROIDECTOMY
     Route: 048
     Dates: start: 20130608, end: 20130612
  2. ARMOUR THYROID [Concomitant]
     Indication: THYROIDECTOMY
     Dosage: 60 MG TITRATED DOWN TO 15 MG.
     Dates: start: 201306

REACTIONS (7)
  - Headache [Recovered/Resolved]
  - Psychomotor hyperactivity [Unknown]
  - Fatigue [Unknown]
  - Dyspnoea [Recovered/Resolved]
  - Heart rate irregular [Recovered/Resolved]
  - Heart rate increased [Recovered/Resolved]
  - Dizziness [Recovered/Resolved]
